FAERS Safety Report 6756129-6 (Version None)
Quarter: 2010Q2

REPORT INFORMATION
  Report Type: 
  Country: None (occurrence: None)
  Receive Date: 20100603
  Receipt Date: 20100603
  Transmission Date: 20101027
  Serious: Yes (Hospitalization)
  Sender: FDA-Public Use
  Company Number: None

PATIENT
  Age: 65 Year
  Sex: Male
  Weight: 70.5 kg

DRUGS (2)
  1. CISPLATIN [Suspect]
     Dosage: 135 MG ONCE IV
     Route: 042
     Dates: start: 20100304, end: 20100304
  2. FLUOROURACIL [Suspect]
     Dates: start: 20100304, end: 20100308

REACTIONS (2)
  - NAUSEA [None]
  - VOMITING [None]
